FAERS Safety Report 11874227 (Version 1)
Quarter: 2015Q4

REPORT INFORMATION
  Report Type: Spontaneous
  Country: US (occurrence: US)
  Receive Date: 20151229
  Receipt Date: 20151229
  Transmission Date: 20160305
  Serious: Yes (Hospitalization)
  Sender: FDA-Public Use
  Company Number: US-ROCHE-1635729

PATIENT
  Age: 60 Year
  Sex: Female
  Weight: 68.1 kg

DRUGS (2)
  1. ESBRIET [Suspect]
     Active Substance: PIRFENIDONE
     Indication: IDIOPATHIC PULMONARY FIBROSIS
     Route: 048
     Dates: start: 201509
  2. ESBRIET [Suspect]
     Active Substance: PIRFENIDONE
     Route: 048
     Dates: start: 20150928

REACTIONS (5)
  - Nasal congestion [Recovering/Resolving]
  - Hypersensitivity [Unknown]
  - Dyspnoea [Unknown]
  - Pneumothorax [Unknown]
  - Confusional state [Unknown]

NARRATIVE: CASE EVENT DATE: 20150917
